FAERS Safety Report 12803934 (Version 3)
Quarter: 2016Q4

REPORT INFORMATION
  Report Type: Spontaneous
  Country: IN (occurrence: IN)
  Receive Date: 20161003
  Receipt Date: 20161024
  Transmission Date: 20170207
  Serious: Yes (Other)
  Sender: FDA-Public Use
  Company Number: IN-PFIZER INC-2016458998

PATIENT
  Age: 36 Year
  Sex: Male

DRUGS (5)
  1. TACROLIMUS. [Concomitant]
     Active Substance: TACROLIMUS
     Indication: TRANSPLANT DYSFUNCTION
     Dosage: 2 MG, 2X/DAY
  2. METHYLPREDNISOLONE SODIUM SUCCINATE. [Suspect]
     Active Substance: METHYLPREDNISOLONE SODIUM SUCCINATE
     Indication: TRANSPLANT DYSFUNCTION
     Dosage: 500 MG, 5 DOSES
     Route: 042
  3. PREDNISOLONE. [Concomitant]
     Active Substance: PREDNISOLONE
     Indication: TRANSPLANT DYSFUNCTION
     Dosage: 20 MG, 1X/DAY
  4. MYCOPHENOLATE SODIUM [Concomitant]
     Active Substance: MYCOPHENOLATE SODIUM
     Indication: TRANSPLANT DYSFUNCTION
     Dosage: 360 MG, 3X/DAY
  5. METHYLPREDNISOLONE SODIUM SUCCINATE. [Suspect]
     Active Substance: METHYLPREDNISOLONE SODIUM SUCCINATE
     Dosage: 500 MG, 3 DOSES
     Route: 042

REACTIONS (4)
  - Hydronephrosis [Recovered/Resolved]
  - BK virus infection [Recovered/Resolved]
  - Ureteric stenosis [Recovered/Resolved]
  - Transplant dysfunction [Recovered/Resolved]
